FAERS Safety Report 6490986-6 (Version None)
Quarter: 2009Q4

REPORT INFORMATION
  Report Type: 
  Country: None (occurrence: None)
  Receive Date: 20091211
  Receipt Date: 20091207
  Transmission Date: 20100525
  Serious: Yes (Other)
  Sender: FDA-Public Use
  Company Number: GB-BRISTOL-MYERS SQUIBB COMPANY-14886493

PATIENT
  Age: 50 Year
  Sex: Female

DRUGS (3)
  1. PACLITAXEL [Suspect]
     Indication: CERVIX CARCINOMA
     Dates: start: 20080207, end: 20080313
  2. CARBOPLATIN [Suspect]
     Indication: CERVIX CARCINOMA
     Dates: start: 20080207, end: 20080313
  3. CISPLATIN [Suspect]
     Indication: CERVIX CARCINOMA
     Dates: start: 20080318

REACTIONS (2)
  - LUNG INFECTION [None]
  - PULMONARY EMBOLISM [None]
